FAERS Safety Report 5413823-7 (Version None)
Quarter: 2007Q3

REPORT INFORMATION
  Report Type: 
  Country: None (occurrence: None)
  Receive Date: 20070814
  Receipt Date: 20061005
  Transmission Date: 20080115
  Serious: No
  Sender: FDA-Public Use
  Company Number: US-BRISTOL-MYERS SQUIBB COMPANY-13531819

PATIENT
  Age: 45 Year
  Sex: Male
  Weight: 66 kg

DRUGS (15)
  1. REYATAZ [Suspect]
     Indication: HIV INFECTION
     Route: 048
  2. LANTUS [Concomitant]
  3. NOVOLOG [Concomitant]
  4. PRAVACHOL [Concomitant]
  5. ZETIA [Concomitant]
  6. TRICOR [Concomitant]
  7. AZITHROMYCIN [Concomitant]
  8. VALTREX [Concomitant]
  9. OXANDRIN [Concomitant]
  10. BACTRIM [Concomitant]
  11. SINGULAIR [Concomitant]
  12. ZYRTEC [Concomitant]
  13. CLONAZEPAM [Concomitant]
  14. ARICEPT [Concomitant]
  15. NEURONTIN [Concomitant]

REACTIONS (1)
  - BLOOD GLUCOSE INCREASED [None]
